FAERS Safety Report 11768981 (Version 1)
Quarter: 2015Q4

REPORT INFORMATION
  Report Type: Spontaneous
  Country: US (occurrence: US)
  Receive Date: 20151123
  Receipt Date: 20151123
  Transmission Date: 20160304
  Serious: No
  Sender: FDA-Public Use
  Company Number: US-JNJFOC-20150926317

PATIENT
  Age: 74 Year
  Sex: Female
  Weight: 68.95 kg

DRUGS (4)
  1. COQ10 [Concomitant]
     Active Substance: UBIDECARENONE
     Indication: NUTRITIONAL SUPPLEMENTATION
     Dosage: DAILY FOR YEARS
     Route: 065
  2. ZYRTEC 10MG IR TABLET [Suspect]
     Active Substance: CETIRIZINE HYDROCHLORIDE
     Route: 048
  3. HIGH BLOOD PRESSURE MEDICATION NOS [Concomitant]
     Active Substance: UNSPECIFIED INGREDIENT
     Indication: HYPERTENSION
     Dosage: DAILY FOR YEARS
     Route: 065
  4. ZYRTEC 10MG IR TABLET [Suspect]
     Active Substance: CETIRIZINE HYDROCHLORIDE
     Indication: MULTIPLE ALLERGIES
     Dosage: ONE TABLET DAILY (EACH MORNING) FOR 2-3 MONTHS
     Route: 048
     Dates: start: 201507, end: 20150928

REACTIONS (2)
  - Back pain [Not Recovered/Not Resolved]
  - Wrong patient received medication [Not Recovered/Not Resolved]

NARRATIVE: CASE EVENT DATE: 20150928
